FAERS Safety Report 20140923 (Version 1)
Quarter: 2021Q4

REPORT INFORMATION
  Report Type: Spontaneous
  Country: CH (occurrence: CH)
  Receive Date: 20211202
  Receipt Date: 20211202
  Transmission Date: 20220304
  Serious: Yes (Hospitalization)
  Sender: FDA-Public Use
  Company Number: None

PATIENT
  Age: 74 Year
  Sex: Male

DRUGS (18)
  1. KEFZOL [Suspect]
     Active Substance: CEFAZOLIN SODIUM
     Indication: Antibiotic prophylaxis
     Dosage: KEFZOL  (CEFAZOLIN) 2 G INTRAVENOUS APPLICATION ON APRIL 9TH, 2021; IN TOTAL
     Route: 041
     Dates: start: 20210409, end: 20210409
  2. ATORVASTATIN [Suspect]
     Active Substance: ATORVASTATIN
     Dosage: 40 MILLIGRAM DAILY;  0-0-1-0, FROM UNKNOWN DATE
     Route: 048
     Dates: end: 20210322
  3. GLICLAZIDE [Suspect]
     Active Substance: GLICLAZIDE
     Dosage: 60 MILLIGRAM DAILY; 1-0-1-0 FROM UNKNOWN DATE
     Route: 048
     Dates: end: 20210325
  4. GEMFIBROZIL [Suspect]
     Active Substance: GEMFIBROZIL
     Dosage: 900 MILLIGRAM DAILY; GEVILON  UNO (GEMFIBROZIL) 0-0-1-0 FROM UNKNOWN DATE
     Route: 048
     Dates: end: 20210322
  5. JANUMET [Suspect]
     Active Substance: METFORMIN HYDROCHLORIDE\SITAGLIPTIN PHOSPHATE
     Dosage: 2 DOSAGE FORMS DAILY; 50/500 MG 1-0-1-0 FROM UNKNOWN POINT IN TIME
     Route: 048
     Dates: end: 20210322
  6. TOUJEO [Concomitant]
     Active Substance: INSULIN GLARGINE
     Dosage: 1 DOSAGE FORMS DAILY; 36-40 IU SUBCUTANEOUSLY PER BLOOD SUGAR IN THE EVENING , ADDITIONAL INFO: MEDI
     Route: 058
  7. NOVORAPID [Concomitant]
     Active Substance: INSULIN ASPART
     Dosage: ACCORDING TO THE SCHEME; AS NECESSARY , UNIT DOSE : 1 DF , ADDITIONAL INFO : CO-MEDICATION: ON ADMIS
     Route: 058
  8. ASPIRIN [Concomitant]
     Active Substance: ASPIRIN
     Dosage: 1 DOSAGE FORMS DAILY; 1-0-0-0 , ADDITIONAL INFO:  MEDICATION: AT HOSPITAL ADMISSION ON 23-APR-2021,
     Route: 048
  9. ESOMEPRAZOLE [Concomitant]
     Active Substance: ESOMEPRAZOLE
     Dosage: 40 MILLIGRAM DAILY; 1-0-0-0, DURING HOSPITALIZATION CHANGE TO OMEPRAZOLE 40 MG , ADDITIONAL INFO:  M
     Route: 048
  10. RAMIPRIL [Concomitant]
     Active Substance: RAMIPRIL
     Dosage: 10 MILLIGRAM DAILY; 5 MG 2-0-0-0 , ADDITIONAL INFO:  MEDICATION: AT HOSPITAL ADMISSION ON 23-APR-202
     Route: 048
  11. AMLODIPINE BESYLATE [Concomitant]
     Active Substance: AMLODIPINE BESYLATE
     Dosage: 5 MILLIGRAM DAILY; AMLODIPINE (EXACT PREPARATION NOT KNOWN) 5 MG 1-0-0-0 , ADDITIONAL INFO:  MEDICAT
     Route: 048
  12. TAMSULOSIN [Concomitant]
     Active Substance: TAMSULOSIN
     Dosage: .4 MILLIGRAM DAILY; TAMSULOSIN (EXACT PREPARATION NOT KNOWN) CAPS 0.4 MG 0-0-1-0 , ADDITIONAL INFO:
     Route: 048
  13. CREON [Concomitant]
     Active Substance: PANCRELIPASE AMYLASE\PANCRELIPASE LIPASE\PANCRELIPASE PROTEASE
     Dosage: 3 DOSAGE FORMS DAILY; CREON  (LIPASES, PROTEASES, AMYLASES) 25000 CAPS 1-1-1-0 , ADDITIONAL INFO:  M
     Route: 048
  14. METAMIZOLE [Concomitant]
     Active Substance: METAMIZOLE
     Dosage: 4000 MILLIGRAM DAILY;  500 MG 2-2-2-2 , ADDITIONAL INFO:  MEDICATION: AT HOSPITAL ADMISSION ON 23-AP
     Route: 048
  15. EUTHYROX [Concomitant]
     Active Substance: LEVOTHYROXINE SODIUM
     Dosage: 100 MICROGRAM DAILY; 100 MCG 7:00 AM: 1 PIECE , ADDITIONAL INFO:  MEDICATION: AT HOSPITAL ADMISSION
     Route: 048
  16. METOPROLOL SUCCINATE [Concomitant]
     Active Substance: METOPROLOL SUCCINATE
     Dosage: 25 MILLIGRAM DAILY; RET 25 MG 1-0-0-0 , ADDITIONAL INFO:  MEDICATION: AT HOSPITAL ADMISSION ON 23-AP
     Route: 048
  17. CHOLECALCIFEROL [Concomitant]
     Active Substance: CHOLECALCIFEROL
     Dosage: 0.6-0-0-0 , UNIT DOSE : 1 DF , ADDITIONAL INFO:  MEDICATION: AT HOSPITAL ADMISSION ON 23-APR-2021,
     Route: 048
  18. MUCO MEPHA [Concomitant]
     Dosage: 600 MILLIGRAM DAILY; 1-0-0-0 , ADDITIONAL INFO:  MEDICATION: AT HOSPITAL ADMISSION ON 23-APR-2021, S
     Route: 048

REACTIONS (1)
  - Drug-induced liver injury [Recovering/Resolving]

NARRATIVE: CASE EVENT DATE: 20210423
